FAERS Safety Report 18878026 (Version 1)
Quarter: 2021Q1

REPORT INFORMATION
  Report Type: Spontaneous
  Country: US (occurrence: US)
  Receive Date: 20210211
  Receipt Date: 20210211
  Transmission Date: 20210420
  Serious: No
  Sender: FDA-Public Use
  Company Number: None

PATIENT
  Age: 68 Year
  Sex: Female

DRUGS (6)
  1. PIQRAY [Suspect]
     Active Substance: ALPELISIB
     Indication: BREAST CANCER
     Route: 048
     Dates: start: 20210122
  2. VITAMIN B12 [Suspect]
     Active Substance: CYANOCOBALAMIN
  3. GREEN TEA EXTRACT (DIETARY SUPPLEMENT) [Concomitant]
     Active Substance: DIETARY SUPPLEMENT
  4. FULVESTRANT. [Suspect]
     Active Substance: FULVESTRANT
  5. METFORMIN XR 500MG [Concomitant]
  6. ASCORBIC ACID. [Concomitant]
     Active Substance: ASCORBIC ACID

REACTIONS (2)
  - Diarrhoea [None]
  - Dehydration [None]

NARRATIVE: CASE EVENT DATE: 20201221
